FAERS Safety Report 6903724-7 (Version None)
Quarter: 2010Q3

REPORT INFORMATION
  Report Type: 
  Country: None (occurrence: None)
  Receive Date: 20100804
  Receipt Date: 20081125
  Transmission Date: 20110219
  Serious: No
  Sender: FDA-Public Use
  Company Number: US-PFIZER INC-2008099721

PATIENT
  Sex: Male

DRUGS (2)
  1. LYRICA [Suspect]
     Indication: NEURALGIA
  2. PROZAC [Suspect]
     Indication: NEURALGIA

REACTIONS (4)
  - FATIGUE [None]
  - FEELING ABNORMAL [None]
  - PAIN [None]
  - SOMNOLENCE [None]
